FAERS Safety Report 8402639-5 (Version None)
Quarter: 2012Q2

REPORT INFORMATION
  Report Type: 
  Country: None (occurrence: None)
  Receive Date: 20120601
  Receipt Date: 20120529
  Transmission Date: 20120825
  Serious: Yes (Death)
  Sender: FDA-Public Use
  Company Number: FR-ROCHE-777174

PATIENT
  Sex: Male
  Weight: 89 kg

DRUGS (7)
  1. NEORECORMON [Suspect]
     Indication: ANAEMIA
     Dosage: DOSE:20000 UI
     Route: 058
     Dates: start: 20110424
  2. PEGASYS [Suspect]
     Indication: HEPATITIS C
     Route: 058
     Dates: start: 20100521
  3. NEORECORMON [Suspect]
     Dosage: DOSE:20000 UI/WEEK
     Route: 058
     Dates: start: 20101117, end: 20110427
  4. NEORECORMON [Suspect]
     Dosage: DOSE: 30000 UI/WEEK
     Route: 058
     Dates: start: 20100826, end: 20101001
  5. DIPROSONE CREAM [Concomitant]
     Indication: ECZEMA
     Dosage: FERQUENCY:A.L.D
     Route: 050
  6. NEORECORMON [Suspect]
     Dosage: DOSE:20000 UI, PART IN 27 APR 2011
     Route: 058
     Dates: start: 20110427
  7. COPEGUS [Suspect]
     Indication: HEPATITIS C
     Route: 048
     Dates: start: 20100521

REACTIONS (3)
  - SUDDEN DEATH [None]
  - CHEST DISCOMFORT [None]
  - ERUCTATION [None]
